FAERS Safety Report 9247941 (Version 2)
Quarter: 2014Q1

REPORT INFORMATION
  Report Type: Spontaneous
  Country: US (occurrence: None)
  Receive Date: 20130305
  Receipt Date: 20140306
  Transmission Date: 20141002
  Serious: Yes (Hospitalization)
  Sender: FDA-Public Use
  Company Number: 163-21880-12101434

PATIENT
  Age: 64 Year
  Sex: Female

DRUGS (10)
  1. REVLIMID [Suspect]
     Indication: PLASMA CELL MYELOMA
     Dosage: 21 IN 28 D
     Route: 048
     Dates: start: 201003, end: 201105
  2. ASPIRIN (ACETYLSALICYLIC ACID) (CHEWABLE TABLET) [Concomitant]
  3. CLARITIN (LORATADINE) (TABLETS) [Concomitant]
  4. LORTAB (VICODIN) (TABLETS) [Concomitant]
  5. COREG (CARVEDILOL) [Concomitant]
  6. LANSOPRAZOLE (LANSOPRAZOLE) [Concomitant]
  7. POTASSIUM CHLORIDE (POTASSIUM CHLORIDE) [Concomitant]
  8. MAGNESIUM OXIDE (MAGNESIUM OXIDE) [Concomitant]
  9. ONDANSETRON HCL(ONDANSETRON HYDROCHLORIDE) [Concomitant]
  10. LEVOFLOXACIN (LEVOFLOXACIN) [Concomitant]

REACTIONS (2)
  - Pneumonia [None]
  - Pyrexia [None]
